FAERS Safety Report 15073179 (Version 1)
Quarter: 2018Q2

REPORT INFORMATION
  Report Type: Report from Study
  Country: US (occurrence: US)
  Receive Date: 20180627
  Receipt Date: 20180627
  Transmission Date: 20180711
  Serious: No
  Sender: FDA-Public Use
  Company Number: US-AMGEN-USASL2018084709

PATIENT
  Sex: Female

DRUGS (2)
  1. CELEBREX [Concomitant]
     Active Substance: CELECOXIB
     Dosage: 10 MG, UNK
  2. ENBREL [Suspect]
     Active Substance: ETANERCEPT
     Indication: JUVENILE IDIOPATHIC ARTHRITIS
     Dosage: 50 MG, QWK
     Route: 065
     Dates: end: 201806

REACTIONS (8)
  - Hypoaesthesia [Unknown]
  - Pain in extremity [Unknown]
  - Paraesthesia [Unknown]
  - Adverse event [Unknown]
  - Gait inability [Unknown]
  - Asthenia [Unknown]
  - Sleep disorder due to a general medical condition [Unknown]
  - Back pain [Unknown]

NARRATIVE: CASE EVENT DATE: 2018
